FAERS Safety Report 4669092-9 (Version None)
Quarter: 2005Q2

REPORT INFORMATION
  Report Type: 
  Country: None (occurrence: None)
  Receive Date: 20050519
  Receipt Date: 20050509
  Transmission Date: 20051028
  Serious: Yes (Other)
  Sender: FDA-Public Use
  Company Number: 2005066305

PATIENT
  Sex: 0

DRUGS (1)
  1. PROSTIN E2 [Suspect]
     Indication: ILL-DEFINED DISORDER
     Dosage: 92 MCG/50ML DEXTROSE, INTRAVENOUS
     Route: 042

REACTIONS (1)
  - CONVULSION NEONATAL [None]
